FAERS Safety Report 9314800 (Version 1)
Quarter: 2013Q2

REPORT INFORMATION
  Report Type: Spontaneous
  Country: US (occurrence: US)
  Receive Date: 20130529
  Receipt Date: 20130529
  Transmission Date: 20140414
  Serious: No
  Sender: FDA-Public Use
  Company Number: US-PFIZER INC-2013163564

PATIENT
  Age: 46 Year
  Sex: Male
  Weight: 106 kg

DRUGS (4)
  1. LYRICA [Suspect]
     Indication: FIBROMYALGIA
     Dosage: 75 MG, 2X/DAY
     Route: 048
     Dates: start: 201303, end: 2013
  2. LYRICA [Suspect]
     Dosage: ONE 75MG CAPSULES IN MORNING AND TWO 75MG CAPSULES AT NIGHT
     Route: 048
     Dates: start: 2013, end: 2013
  3. LYRICA [Suspect]
     Dosage: 150 MG (TWO 75MG CAPSULES), 2X/DAY
     Route: 048
     Dates: start: 2013, end: 201305
  4. LYRICA [Suspect]
     Dosage: 75 MG, 2X/DAY
     Route: 048
     Dates: start: 201305

REACTIONS (2)
  - Gait disturbance [Not Recovered/Not Resolved]
  - Pain [Not Recovered/Not Resolved]
